FAERS Safety Report 6649748-9 (Version None)
Quarter: 2010Q1

REPORT INFORMATION
  Report Type: 
  Country: None (occurrence: None)
  Receive Date: 20100324
  Receipt Date: 20100324
  Transmission Date: 20100710
  Serious: Yes (Life-Threatening)
  Sender: FDA-Public Use
  Company Number: None

PATIENT
  Sex: Female
  Weight: 92.9874 kg

DRUGS (1)
  1. METOCLOPRAMIDE [Suspect]
     Indication: IMPAIRED GASTRIC EMPTYING
     Dosage: 1 TEASPOON 4 X DAILY PO
     Route: 048
     Dates: start: 20100118, end: 20100123

REACTIONS (5)
  - MUSCLE RIGIDITY [None]
  - MUSCLE SPASMS [None]
  - PAIN IN EXTREMITY [None]
  - PHLEBITIS [None]
  - THROMBOSIS [None]
